FAERS Safety Report 4839946-9 (Version None)
Quarter: 2005Q4

REPORT INFORMATION
  Report Type: 
  Country: None (occurrence: None)
  Receive Date: 20051129
  Receipt Date: 20051116
  Transmission Date: 20060501
  Serious: Yes (Other)
  Sender: FDA-Public Use
  Company Number: JP-BRISTOL-MYERS SQUIBB COMPANY-13196555

PATIENT
  Age: 18 Year
  Sex: Male

DRUGS (2)
  1. GATIFLOXACIN [Suspect]
     Indication: URETHRITIS
     Route: 048
     Dates: start: 20051110, end: 20051110
  2. MINOCYCLINE HCL [Concomitant]

REACTIONS (3)
  - DYSPNOEA [None]
  - GENERALISED ERYTHEMA [None]
  - MUCOUS MEMBRANE DISORDER [None]
